FAERS Safety Report 9672281 (Version 3)
Quarter: 2014Q2

REPORT INFORMATION
  Report Type: Spontaneous
  Country: AR (occurrence: AR)
  Receive Date: 20131106
  Receipt Date: 20140421
  Transmission Date: 20141212
  Serious: Yes (Other)
  Sender: FDA-Public Use
  Company Number: PHHY2013AR125377

PATIENT
  Age: 73 Year
  Sex: Female

DRUGS (1)
  1. VOLTAREN [Suspect]
     Indication: PTERYGIUM
     Dosage: 1 DF, QW3
     Route: 047

REACTIONS (7)
  - Glaucoma [Recovering/Resolving]
  - Ulcer [Unknown]
  - Pterygium [Recovered/Resolved]
  - Disease progression [Recovering/Resolving]
  - Anxiety [Unknown]
  - Eye irritation [Not Recovered/Not Resolved]
  - Ocular hyperaemia [Unknown]
